FAERS Safety Report 4431300-7 (Version None)
Quarter: 2004Q3

REPORT INFORMATION
  Report Type: 
  Country: None (occurrence: None)
  Receive Date: 20040820
  Receipt Date: 20040820
  Transmission Date: 20050211
  Serious: Yes (Hospitalization)
  Sender: FDA-Public Use
  Company Number: None

PATIENT
  Age: 22 Year
  Sex: Female
  Weight: 58.9676 kg

DRUGS (1)
  1. DEPAKOTE [Suspect]
     Indication: BIPOLAR II DISORDER
     Dosage: 1500 MG DAILY
     Dates: start: 19990701, end: 19990901

REACTIONS (13)
  - DIPLOPIA [None]
  - DYSARTHRIA [None]
  - FATIGUE [None]
  - HALLUCINATION, VISUAL [None]
  - HEADACHE [None]
  - MENTAL DISORDER [None]
  - NERVOUSNESS [None]
  - PSYCHOTIC DISORDER [None]
  - SCHIZOTYPAL PERSONALITY DISORDER [None]
  - SOMNOLENCE [None]
  - SUICIDAL IDEATION [None]
  - TINNITUS [None]
  - TREMOR [None]
